FAERS Safety Report 9607269 (Version 4)
Quarter: 2014Q4

REPORT INFORMATION
  Report Type: Report from Study
  Country: ES (occurrence: ES)
  Receive Date: 20131009
  Receipt Date: 20141107
  Transmission Date: 20150529
  Serious: Yes (Hospitalization)
  Sender: FDA-Public Use
  Company Number: ES-009507513-1310ESP003285

PATIENT
  Age: 11 Year
  Sex: Female

DRUGS (10)
  1. VALPROIC ACID. [Concomitant]
     Active Substance: VALPROIC ACID
     Dosage: UNK
     Dates: start: 20130128
  2. TEMOZOLOMIDE. [Suspect]
     Active Substance: TEMOZOLOMIDE
     Dosage: 145 MG, QD
     Route: 065
     Dates: start: 20140424, end: 20140428
  3. GABAPENTIN. [Concomitant]
     Active Substance: GABAPENTIN
     Dosage: UNK
     Dates: start: 20130201, end: 20140520
  4. TEMOZOLOMIDE. [Suspect]
     Active Substance: TEMOZOLOMIDE
     Dosage: 215 MG, QD
     Route: 065
     Dates: start: 20130812, end: 20130812
  5. TEMOZOLOMIDE. [Suspect]
     Active Substance: TEMOZOLOMIDE
     Indication: GLIOMA
     Dosage: 205 MG, QD
     Route: 065
     Dates: start: 20130425, end: 20130808
  6. TEMOZOLOMIDE. [Suspect]
     Active Substance: TEMOZOLOMIDE
     Dosage: 210 MG, QD
     Route: 065
     Dates: start: 20130809, end: 20130811
  7. DEXAMETHASONE. [Concomitant]
     Active Substance: DEXAMETHASONE
     Dosage: 1 MG, BID
     Route: 048
     Dates: start: 20130226, end: 20140307
  8. SEPTRIN [Concomitant]
     Active Substance: SULFAMETHOXAZOLE\TRIMETHOPRIM
     Dosage: UNK
     Dates: start: 20130215
  9. HIDROALTESONA [Concomitant]
     Dosage: 5 MG, QD
     Route: 048
     Dates: start: 20140411
  10. HIDROALTESONA [Concomitant]
     Dosage: 5 MG, QD
     Route: 048
     Dates: start: 20130319, end: 20140410

REACTIONS (4)
  - Platelet count decreased [Recovered/Resolved]
  - Subcutaneous abscess [Not Recovered/Not Resolved]
  - Herpes zoster [Recovered/Resolved]
  - Drug dispensing error [Unknown]

NARRATIVE: CASE EVENT DATE: 2013
